FAERS Safety Report 7036893-1 (Version None)
Quarter: 2010Q4

REPORT INFORMATION
  Report Type: 
  Country: None (occurrence: None)
  Receive Date: 20101011
  Receipt Date: 20100930
  Transmission Date: 20110411
  Serious: No
  Sender: FDA-Public Use
  Company Number: JP-JNJFOC-20101000750

PATIENT
  Age: 91 Year
  Sex: Female

DRUGS (1)
  1. DUROTEP MT [Suspect]
     Indication: PRODUCT USED FOR UNKNOWN INDICATION
     Route: 062

REACTIONS (3)
  - DIZZINESS [None]
  - NERVOUS SYSTEM DISORDER [None]
  - WRONG TECHNIQUE IN DRUG USAGE PROCESS [None]
